FAERS Safety Report 6736968-8 (Version None)
Quarter: 2010Q2

REPORT INFORMATION
  Report Type: 
  Country: None (occurrence: None)
  Receive Date: 20100523
  Receipt Date: 20100503
  Transmission Date: 20101027
  Serious: Yes (Other)
  Sender: FDA-Public Use
  Company Number: NL-ASTRAZENECA-2010SE22555

PATIENT
  Sex: Female

DRUGS (5)
  1. SEROQUEL XR [Suspect]
     Indication: DEPRESSION
     Route: 048
  2. CIPRAMIL [Suspect]
     Indication: DEPRESSION
     Route: 065
  3. LEXAPRO [Suspect]
     Indication: DEPRESSION
     Route: 065
  4. NORTRIPTYLINE HCL [Suspect]
     Indication: DEPRESSION
     Route: 065
  5. SEROXAT [Suspect]
     Indication: DEPRESSION
     Route: 065

REACTIONS (5)
  - DENTAL CARIES [None]
  - DEPRESSION [None]
  - DRY MOUTH [None]
  - THINKING ABNORMAL [None]
  - WEIGHT INCREASED [None]
